FAERS Safety Report 5958525-3 (Version None)
Quarter: 2008Q4

REPORT INFORMATION
  Report Type: 
  Country: None (occurrence: None)
  Receive Date: 20081119
  Receipt Date: 20081107
  Transmission Date: 20090506
  Serious: Yes (Hospitalization)
  Sender: FDA-Public Use
  Company Number: US-PFIZER INC-2008091774

PATIENT
  Sex: Male
  Weight: 90.3 kg

DRUGS (9)
  1. MARAVIROC [Suspect]
     Indication: HIV INFECTION
     Route: 048
     Dates: start: 20050707
  2. SULFAMETHOXAZOLE AND TRIMETHOPRIM [Concomitant]
     Route: 048
     Dates: start: 20030103
  3. ACETYLSALICYLIC ACID SRT [Concomitant]
     Route: 048
     Dates: start: 20030103
  4. ATORVASTATIN CALCIUM [Concomitant]
     Route: 048
     Dates: start: 20030105
  5. ESZOPICLONE [Concomitant]
     Route: 048
     Dates: start: 20050811
  6. TESTOSTERONE [Concomitant]
     Route: 061
     Dates: start: 20050811
  7. ACYCLOVIR [Concomitant]
     Route: 048
     Dates: start: 20030103
  8. ATENOLOL [Concomitant]
     Route: 048
     Dates: start: 20051101
  9. GEMFIBROZIL [Concomitant]
     Route: 048
     Dates: start: 20051101

REACTIONS (1)
  - ACUTE MYOCARDIAL INFARCTION [None]
